FAERS Safety Report 6726681-5 (Version None)
Quarter: 2010Q2

REPORT INFORMATION
  Report Type: 
  Country: None (occurrence: None)
  Receive Date: 20100514
  Receipt Date: 20100506
  Transmission Date: 20101027
  Serious: Yes (Hospitalization)
  Sender: FDA-Public Use
  Company Number: BR-AMGEN-QUU412082

PATIENT
  Sex: Female
  Weight: 75 kg

DRUGS (6)
  1. ENBREL [Suspect]
     Indication: RHEUMATOID ARTHRITIS
     Route: 058
     Dates: start: 20080101, end: 20090101
  2. ENBREL [Suspect]
     Dates: start: 20090101
  3. RIVOTRIL [Concomitant]
     Dosage: 13 DROPS UNSPECIFIED FREQUENCY
  4. PRISTIQ [Concomitant]
     Route: 048
     Dates: start: 20100101
  5. LINSEED [Concomitant]
     Dosage: UNSPECIFIED
     Dates: end: 20090101
  6. PANTOPRAZOLE [Concomitant]

REACTIONS (8)
  - ABASIA [None]
  - AMNESIA [None]
  - ARTHRALGIA [None]
  - CRYING [None]
  - DRUG INEFFECTIVE [None]
  - GASTRIC DISORDER [None]
  - MEMORY IMPAIRMENT [None]
  - URINARY TRACT INFECTION [None]
